FAERS Safety Report 6666812-9 (Version None)
Quarter: 2010Q2

REPORT INFORMATION
  Report Type: 
  Country: None (occurrence: None)
  Receive Date: 20100405
  Receipt Date: 20100324
  Transmission Date: 20101027
  Serious: Yes (Other)
  Sender: FDA-Public Use
  Company Number: US-JNJFOC-20100307582

PATIENT
  Sex: Female
  Weight: 64.41 kg

DRUGS (7)
  1. TOPAMAX [Suspect]
     Indication: MIGRAINE PROPHYLAXIS
     Route: 048
  2. TOPAMAX [Suspect]
     Route: 048
  3. TOPAMAX [Suspect]
     Route: 048
  4. TOPAMAX [Suspect]
     Route: 048
  5. TOPAMAX [Suspect]
     Route: 048
  6. UNSPECIFIED TOPIRAMATE [Suspect]
     Indication: MIGRAINE PROPHYLAXIS
     Route: 048
  7. UNSPECIFIED TOPIRAMATE [Suspect]
     Route: 048

REACTIONS (6)
  - CHEST DISCOMFORT [None]
  - DYSPNOEA [None]
  - HYPERSENSITIVITY [None]
  - MIGRAINE [None]
  - PALPITATIONS [None]
  - SENSORY DISTURBANCE [None]
